APPROVED DRUG PRODUCT: ACETAZOLAMIDE
Active Ingredient: ACETAZOLAMIDE
Strength: 500MG
Dosage Form/Route: CAPSULE, EXTENDED RELEASE;ORAL
Application: A205301 | Product #001 | TE Code: AB
Applicant: CADILA HEALTHCARE LTD
Approved: Jan 16, 2019 | RLD: No | RS: Yes | Type: RX